FAERS Safety Report 10632715 (Version 2)
Quarter: 2014Q4

REPORT INFORMATION
  Report Type: Spontaneous
  Country: US (occurrence: US)
  Receive Date: 20141205
  Receipt Date: 20141205
  Transmission Date: 20150529
  Serious: No
  Sender: FDA-Public Use
  Company Number: US200907006960

PATIENT
  Sex: Female

DRUGS (2)
  1. EXENATIDE UNK STRENGTH PEN, DISPOSABLE DEVICE [Concomitant]
     Active Substance: EXENATIDE
  2. BYETTA [Suspect]
     Active Substance: EXENATIDE
     Dosage: 5MCG TWICE
     Route: 058

REACTIONS (2)
  - Medication error [Unknown]
  - Weight decreased [Unknown]
